FAERS Safety Report 5327335-2 (Version None)
Quarter: 2007Q2

REPORT INFORMATION
  Report Type: 
  Country: None (occurrence: None)
  Receive Date: 20070517
  Receipt Date: 20070514
  Transmission Date: 20071010
  Serious: Yes (Hospitalization)
  Sender: FDA-Public Use
  Company Number: US-BRISTOL-MYERS SQUIBB COMPANY-13778998

PATIENT
  Age: 57 Year
  Weight: 112 kg

DRUGS (3)
  1. DEFINITY [Suspect]
     Indication: ECHOCARDIOGRAM
  2. TOPROL-XL [Concomitant]
  3. DILTIAZEM HCL [Concomitant]

REACTIONS (3)
  - DYSKINESIA [None]
  - PRESYNCOPE [None]
  - URTICARIA [None]
